FAERS Safety Report 5918018-6 (Version None)
Quarter: 2008Q4

REPORT INFORMATION
  Report Type: 
  Country: None (occurrence: None)
  Receive Date: 20081014
  Receipt Date: 20080925
  Transmission Date: 20090506
  Serious: Yes (Hospitalization)
  Sender: FDA-Public Use
  Company Number: JP-PFIZER INC-2008075883

PATIENT
  Sex: Male
  Weight: 42.4 kg

DRUGS (8)
  1. ALDACTONE [Suspect]
     Indication: DIURETIC THERAPY
     Route: 048
     Dates: start: 20080825, end: 20080831
  2. ALDACTONE [Suspect]
     Indication: BLOOD PRESSURE MANAGEMENT
  3. DOXAZOSIN MESYLATE [Concomitant]
     Route: 049
  4. CAPTOPRIL [Concomitant]
     Route: 049
  5. CALBLOCK [Concomitant]
     Route: 048
     Dates: start: 20080807, end: 20080925
  6. TAKEPRON [Concomitant]
     Route: 048
     Dates: end: 20080925
  7. ANTIBIOTICS [Concomitant]
     Route: 048
     Dates: start: 20080817, end: 20080925
  8. IMIDAPRIL HYDROCHLORIDE [Concomitant]
     Route: 048
     Dates: start: 20080730, end: 20080925

REACTIONS (1)
  - PLATELET COUNT DECREASED [None]
